FAERS Safety Report 10147218 (Version 1)
Quarter: 2014Q2

REPORT INFORMATION
  Report Type: Spontaneous
  Country: CL (occurrence: CL)
  Receive Date: 20140501
  Receipt Date: 20140501
  Transmission Date: 20141212
  Serious: Yes (Other)
  Sender: FDA-Public Use
  Company Number: CL-PFIZER INC-2014117767

PATIENT
  Age: 67 Year
  Sex: Female

DRUGS (2)
  1. XALATAN [Suspect]
     Indication: GLAUCOMA
  2. EUTIROX [Concomitant]

REACTIONS (2)
  - Intraocular pressure test abnormal [Unknown]
  - Visual impairment [Unknown]
